FAERS Safety Report 18726976 (Version 1)
Quarter: 2021Q1

REPORT INFORMATION
  Report Type: Spontaneous
  Country: CA (occurrence: CA)
  Receive Date: 20210112
  Receipt Date: 20210112
  Transmission Date: 20210419
  Serious: Yes (Other)
  Sender: FDA-Public Use
  Company Number: CA-ALKEM LABORATORIES LIMITED-CA-ALKEM-2020-09414

PATIENT
  Age: 12 Day
  Sex: Male

DRUGS (3)
  1. SERTRALINE [Suspect]
     Active Substance: SERTRALINE HYDROCHLORIDE
     Indication: BIPOLAR DISORDER
     Dosage: 100 MILLIGRAM, QD
     Route: 065
  2. ARIPIPRAZOLE. [Suspect]
     Active Substance: ARIPIPRAZOLE
     Indication: BIPOLAR DISORDER
     Dosage: 15 MILLIGRAM, QD
     Route: 065
  3. LAMOTRIGINE. [Suspect]
     Active Substance: LAMOTRIGINE
     Indication: BIPOLAR DISORDER
     Dosage: 250 MILLIGRAM, QD
     Route: 065

REACTIONS (9)
  - Gangrene [Unknown]
  - Neonatal insufficient breast milk syndrome [Unknown]
  - Disseminated intravascular coagulation [Unknown]
  - Debridement [Unknown]
  - Exposure via breast milk [Unknown]
  - Toe amputation [Unknown]
  - Necrosis [Unknown]
  - Dehydration [Unknown]
  - Arterial thrombosis [Unknown]
